FAERS Safety Report 4530562-5 (Version None)
Quarter: 2004Q4

REPORT INFORMATION
  Report Type: 
  Country: None (occurrence: None)
  Receive Date: 20041217
  Receipt Date: 20041217
  Transmission Date: 20050328
  Serious: Yes (Life-Threatening, Hospitalization)
  Sender: FDA-Public Use
  Company Number: None

PATIENT
  Age: 9 Year
  Sex: Male
  Weight: 23.587 kg

DRUGS (2)
  1. PROZAC [Suspect]
     Indication: ATTENTION DEFICIT/HYPERACTIVITY DISORDER
     Dosage: DAILY
     Dates: start: 20030104, end: 20031214
  2. CONCERTA [Suspect]
     Indication: AFFECTIVE DISORDER
     Dosage: DAILY
     Dates: start: 20030104, end: 20041214

REACTIONS (2)
  - ABNORMAL BEHAVIOUR [None]
  - SUICIDAL IDEATION [None]
